FAERS Safety Report 5194223-4 (Version None)
Quarter: 2006Q4

REPORT INFORMATION
  Report Type: 
  Country: None (occurrence: None)
  Receive Date: 20061228
  Receipt Date: 20061218
  Transmission Date: 20070319
  Serious: Yes (Other)
  Sender: FDA-Public Use
  Company Number: FR-PFIZER INC-2006154888

PATIENT
  Age: 50 Year
  Sex: Female

DRUGS (2)
  1. LYRICA [Suspect]
     Indication: INJURY
  2. LYRICA [Suspect]
     Indication: NEURALGIA

REACTIONS (1)
  - HYPERTENSION [None]
